FAERS Safety Report 4616325-0 (Version None)
Quarter: 2005Q1

REPORT INFORMATION
  Report Type: 
  Country: None (occurrence: None)
  Receive Date: 20050321
  Receipt Date: 20050209
  Transmission Date: 20050727
  Serious: Yes (Hospitalization)
  Sender: FDA-Public Use
  Company Number: 200501475

PATIENT
  Age: 65 Year
  Sex: Female
  Weight: 55.3388 kg

DRUGS (7)
  1. BOTOX [Suspect]
     Indication: TORTICOLLIS
  2. OXALIPLATIN [Suspect]
     Indication: COLON CANCER
  3. AVASTIN [Concomitant]
  4. XELODA [Concomitant]
  5. PROPRANOLOL [Concomitant]
  6. PREMARIN [Concomitant]
  7. PRINIVIL [Concomitant]

REACTIONS (7)
  - APRAXIA [None]
  - COLITIS [None]
  - DEHYDRATION [None]
  - DIARRHOEA [None]
  - MUSCLE CONTRACTIONS INVOLUNTARY [None]
  - MUSCLE SPASMS [None]
  - PYREXIA [None]
